FAERS Safety Report 6151960-2 (Version None)
Quarter: 2009Q2

REPORT INFORMATION
  Report Type: 
  Country: None (occurrence: None)
  Receive Date: 20090410
  Receipt Date: 20090327
  Transmission Date: 20091009
  Serious: Yes (Hospitalization)
  Sender: FDA-Public Use
  Company Number: JP-GENENTECH-280140

PATIENT
  Age: 61 Year
  Sex: Male

DRUGS (7)
  1. RITUXIMAB [Suspect]
     Indication: RENAL TRANSPLANT
     Dosage: 500 MG, UNK
     Route: 041
  2. BASILIXIMAB [Suspect]
     Indication: RENAL TRANSPLANT
     Route: 050
  3. MYCOPHENOLATE MOFETIL [Suspect]
     Indication: RENAL TRANSPLANT
     Route: 048
  4. PLASMAPHERESIS [Concomitant]
     Indication: RENAL TRANSPLANT
  5. MEDROL [Concomitant]
     Indication: DRUG USE FOR UNKNOWN INDICATION
  6. CYCLOSPORINE [Concomitant]
     Indication: DRUG USE FOR UNKNOWN INDICATION
  7. TACROLIMUS [Concomitant]
     Indication: DRUG USE FOR UNKNOWN INDICATION

REACTIONS (1)
  - CYTOMEGALOVIRUS INFECTION [None]
